FAERS Safety Report 6691012-6 (Version None)
Quarter: 2010Q2

REPORT INFORMATION
  Report Type: 
  Country: None (occurrence: None)
  Receive Date: 20100421
  Receipt Date: 20100414
  Transmission Date: 20101027
  Serious: Yes (Hospitalization)
  Sender: FDA-Public Use
  Company Number: JP-MERCK-1004USA02514

PATIENT
  Age: 79 Year
  Sex: Female

DRUGS (8)
  1. JANUVIA [Suspect]
     Indication: DIABETES MELLITUS
     Route: 048
     Dates: start: 20100409
  2. LASIX [Concomitant]
     Route: 065
  3. GLYCORAN [Concomitant]
     Route: 048
  4. ALDACTONE [Concomitant]
     Route: 048
  5. RIBALL [Concomitant]
     Route: 048
  6. DOXAZOSIN MESYLATE [Concomitant]
     Route: 048
  7. CALBLOCK [Concomitant]
     Route: 048
  8. DAONIL [Concomitant]
     Route: 048

REACTIONS (1)
  - CHOLECYSTITIS [None]
